FAERS Safety Report 4434304-3 (Version None)
Quarter: 2004Q3

REPORT INFORMATION
  Report Type: 
  Country: None (occurrence: None)
  Receive Date: 20040826
  Receipt Date: 20040721
  Transmission Date: 20050211
  Serious: Yes (Life-Threatening, Hospitalization, Disabling, Other)
  Sender: FDA-Public Use
  Company Number: US-MERCK-0407USA01788

PATIENT
  Age: 81 Year
  Sex: Female
  Weight: 82 kg

DRUGS (14)
  1. CYANOCOBALAMIN [Concomitant]
     Route: 065
  2. VALIUM [Concomitant]
     Route: 065
  3. VASOTEC [Concomitant]
     Route: 048
  4. ZETIA [Suspect]
     Indication: HYPERLIPIDAEMIA
     Route: 048
     Dates: start: 20040628
  5. ZETIA [Suspect]
     Indication: BLOOD CHOLESTEROL INCREASED
     Route: 048
     Dates: start: 20040628
  6. ALLEGRA [Concomitant]
     Route: 065
  7. LOPID [Concomitant]
     Route: 065
  8. GLUCOSAMINE [Concomitant]
     Route: 065
  9. LEVOXYL [Concomitant]
     Route: 065
  10. OCUVITE [Concomitant]
     Route: 065
  11. EVISTA [Concomitant]
     Route: 065
  12. MIACALCIN [Concomitant]
     Route: 055
  13. NASACORT [Concomitant]
     Route: 065
  14. VITAMIN E [Concomitant]
     Route: 065

REACTIONS (4)
  - PANCREATITIS ACUTE [None]
  - PLEURAL EFFUSION [None]
  - RENAL FAILURE [None]
  - RESPIRATORY FAILURE [None]
